FAERS Safety Report 9380983 (Version 3)
Quarter: 2013Q3

REPORT INFORMATION
  Report Type: Report from Study
  Country: US (occurrence: US)
  Receive Date: 20130703
  Receipt Date: 20130906
  Transmission Date: 20140515
  Serious: Yes (Hospitalization, Other)
  Sender: FDA-Public Use
  Company Number: US-ROCHE-1242577

PATIENT
  Age: 36 Year
  Sex: Male
  Weight: 59.02 kg

DRUGS (18)
  1. RITUXAN [Suspect]
     Indication: THROMBOTIC THROMBOCYTOPENIC PURPURA
     Route: 042
     Dates: start: 20110301
  2. RITUXAN [Suspect]
     Route: 065
     Dates: start: 20130329
  3. BENADRYL (UNITED STATES) [Concomitant]
     Route: 042
  4. BENADRYL (UNITED STATES) [Concomitant]
     Route: 042
  5. PREDNISONE [Concomitant]
  6. HYDROCORTISONE [Concomitant]
  7. DEXAMETHASONE SODIUM PHOSPHATE [Concomitant]
     Route: 042
  8. ALBUTEROL INHALER [Concomitant]
     Route: 065
  9. SOLU-CORTEF [Concomitant]
     Route: 042
  10. FAMOTIDINE [Concomitant]
     Route: 042
  11. ACETAMINOPHEN [Concomitant]
     Route: 065
  12. LORAZEPAM [Concomitant]
     Route: 042
  13. HYDROXIZINE CHLORIDE [Concomitant]
     Route: 048
  14. SINGULAIR [Concomitant]
     Route: 048
  15. AMBIEN [Concomitant]
     Route: 048
  16. ZOFRAN [Concomitant]
     Route: 048
  17. AMOXICILLIN [Concomitant]
     Route: 048
  18. PROZAC [Concomitant]
     Route: 065

REACTIONS (14)
  - Hypersensitivity [Unknown]
  - Clostridium difficile infection [Unknown]
  - Laboratory test abnormal [Unknown]
  - Weight decreased [Unknown]
  - Nasal congestion [Unknown]
  - Cough [Unknown]
  - Skin warm [Unknown]
  - Somnolence [Unknown]
  - Artery dissection [Recovered/Resolved]
  - Abdominal pain [Recovered/Resolved]
  - Pharyngeal oedema [Unknown]
  - Dyskinesia [Unknown]
  - Depression [Not Recovered/Not Resolved]
  - Gastritis [Unknown]
